FAERS Safety Report 23929125 (Version 1)
Quarter: 2024Q2

REPORT INFORMATION
  Report Type: Spontaneous
  Country: US (occurrence: US)
  Receive Date: 20240601
  Receipt Date: 20240601
  Transmission Date: 20240716
  Serious: Yes (Death, Hospitalization, Other)
  Sender: FDA-Public Use
  Company Number: US-GLENMARK PHARMACEUTICALS-2024GMK091115

PATIENT

DRUGS (1)
  1. TACROLIMUS [Suspect]
     Active Substance: TACROLIMUS
     Indication: Product used for unknown indication
     Dosage: UNK
     Route: 065

REACTIONS (6)
  - Epstein-Barr virus infection reactivation [Fatal]
  - Haemophagocytic lymphohistiocytosis [Fatal]
  - Cytomegalovirus infection reactivation [Fatal]
  - Thrombotic microangiopathy [Fatal]
  - Choriomeningitis lymphocytic [Fatal]
  - Multiple organ dysfunction syndrome [Fatal]
